FAERS Safety Report 14011626 (Version 1)
Quarter: 2017Q3

REPORT INFORMATION
  Report Type: Spontaneous
  Country: US (occurrence: US)
  Receive Date: 20170926
  Receipt Date: 20170926
  Transmission Date: 20171128
  Serious: No
  Sender: FDA-Public Use
  Company Number: PHEH2017US030098

PATIENT
  Sex: Female
  Weight: 57.6 kg

DRUGS (1)
  1. TIMOLOL GFS [Suspect]
     Active Substance: TIMOLOL MALEATE
     Indication: GLAUCOMA
     Dosage: UNK
     Route: 047
     Dates: start: 20170915

REACTIONS (3)
  - Eyelid margin crusting [Unknown]
  - Vision blurred [Unknown]
  - Visual acuity reduced [Unknown]
